FAERS Safety Report 12001240 (Version 1)
Quarter: 2016Q1

REPORT INFORMATION
  Report Type: Spontaneous
  Country: US (occurrence: US)
  Receive Date: 20160204
  Receipt Date: 20160204
  Transmission Date: 20160526
  Serious: Yes (Other)
  Sender: FDA-Public Use
  Company Number: US-SA-2016SA016690

PATIENT
  Age: 71 Year
  Sex: Female

DRUGS (2)
  1. LANTUS SOLOSTAR [Suspect]
     Active Substance: INSULIN GLARGINE
     Indication: TYPE 2 DIABETES MELLITUS
     Dosage: DOSE:50 UNIT(S)
     Route: 065
     Dates: start: 1999
  2. SOLOSTAR [Concomitant]
     Active Substance: DEVICE
     Indication: TYPE 2 DIABETES MELLITUS

REACTIONS (3)
  - Deafness [Unknown]
  - Blindness unilateral [Unknown]
  - Eye haemorrhage [Unknown]
